FAERS Safety Report 13909062 (Version 1)
Quarter: 2017Q3

REPORT INFORMATION
  Report Type: Report from Study
  Country: US (occurrence: US)
  Receive Date: 20170828
  Receipt Date: 20170828
  Transmission Date: 20171127
  Serious: Yes (Other)
  Sender: FDA-Public Use
  Company Number: US-ROCHE-1983871

PATIENT
  Sex: Female

DRUGS (1)
  1. MYCOPHENOLATE MOFETIL. [Suspect]
     Active Substance: MYCOPHENOLATE MOFETIL
     Indication: NEPHROTIC SYNDROME
     Route: 048

REACTIONS (7)
  - Blood urea increased [Unknown]
  - Blood creatinine increased [Unknown]
  - Hypertension [Unknown]
  - Off label use [Unknown]
  - Pain in extremity [Recovered/Resolved with Sequelae]
  - Proteinuria [Unknown]
  - Intentional product use issue [Unknown]
